FAERS Safety Report 9687422 (Version 2)
Quarter: 2013Q4

REPORT INFORMATION
  Report Type: Spontaneous
  Country: US (occurrence: US)
  Receive Date: 20131114
  Receipt Date: 20131216
  Transmission Date: 20140711
  Serious: Yes (Disabling)
  Sender: FDA-Public Use
  Company Number: US-009507513-1311USA002343

PATIENT
  Age: 68 Year
  Sex: Female
  Weight: 49.89 kg

DRUGS (8)
  1. REMERON [Suspect]
     Indication: INSOMNIA
     Dosage: TOTAL DAILY DOSE: 30 MG
     Route: 048
     Dates: start: 20110929, end: 201308
  2. REMERON [Suspect]
     Indication: ANXIETY
     Dosage: 15 MG TABLETS/ONCE IN THE EVENING, SPLIT TABLETS INTO 7.5 MG TABLETS
     Route: 048
     Dates: end: 20130902
  3. REMERON [Suspect]
     Indication: INSOMNIA
     Dosage: 30 MG, ONCE IN THE EVENING
     Route: 048
     Dates: end: 20130902
  4. REMERON [Suspect]
     Indication: ANXIETY
  5. XANAX [Concomitant]
     Indication: SEDATION
  6. ATIVAN [Concomitant]
     Indication: SEDATION
  7. NEXIUM [Concomitant]
     Route: 048
  8. COZAAR [Concomitant]
     Route: 048

REACTIONS (3)
  - Anxiety [Recovered/Resolved]
  - Drug ineffective [Not Recovered/Not Resolved]
  - Dizziness [Not Recovered/Not Resolved]
